FAERS Safety Report 16305434 (Version 1)
Quarter: 2019Q2

REPORT INFORMATION
  Report Type: Spontaneous
  Country: CA (occurrence: CA)
  Receive Date: 20190513
  Receipt Date: 20190513
  Transmission Date: 20190711
  Serious: Yes (Disabling)
  Sender: FDA-Public Use
  Company Number: CA-TEVA-2019-CA-1047609

PATIENT
  Age: 65 Year
  Sex: Male

DRUGS (4)
  1. ROSUVASTATIN TABLET [Concomitant]
     Active Substance: ROSUVASTATIN
  2. ZOPICLONE [Concomitant]
     Active Substance: ZOPICLONE
  3. ESCITALOPRAM [Suspect]
     Active Substance: ESCITALOPRAM OXALATE
     Indication: DEPRESSION
     Dosage: 10 MILLIGRAM DAILY;
     Route: 048
  4. APIXABAN [Concomitant]
     Active Substance: APIXABAN

REACTIONS (3)
  - Tension headache [Unknown]
  - Dry mouth [Unknown]
  - Dizziness [Unknown]
